FAERS Safety Report 7454314-1 (Version None)
Quarter: 2011Q2

REPORT INFORMATION
  Report Type: 
  Country: None (occurrence: None)
  Receive Date: 20110503
  Receipt Date: 20110428
  Transmission Date: 20111010
  Serious: Yes (Death)
  Sender: FDA-Public Use
  Company Number: BR-BAYER-2011-030167

PATIENT
  Sex: Male

DRUGS (4)
  1. BETASERC [Concomitant]
     Route: 064
  2. BETAFERON [Suspect]
     Dosage: UNK
     Route: 064
     Dates: end: 20070301
  3. HEPARIN [Concomitant]
     Route: 064
  4. SOLU-MEDROL [Suspect]
     Route: 064

REACTIONS (4)
  - INTRA-UTERINE DEATH [None]
  - FOETAL MALFORMATION [None]
  - MULTI-ORGAN FAILURE [None]
  - CARDIAC ARREST [None]
